FAERS Safety Report 4610034-X (Version None)
Quarter: 2005Q1

REPORT INFORMATION
  Report Type: 
  Country: None (occurrence: None)
  Receive Date: 20050316
  Receipt Date: 20050303
  Transmission Date: 20050727
  Serious: Yes (Hospitalization)
  Sender: FDA-Public Use
  Company Number: US-JNJFOC-20041206532

PATIENT
  Sex: Male

DRUGS (6)
  1. EXTRA STRENGTH TYLENOL [Suspect]
     Route: 049
  2. EXTRA STRENGTH TYLENOL [Suspect]
     Indication: HEADACHE
     Route: 049
  3. EXTRA STRENGTH TYLENOL [Suspect]
     Route: 049
  4. EXTRA STRENGTH TYLENOL [Suspect]
     Route: 049
  5. ALUMINUM HYDROXIDE AND MAGNESIUM TRISILICATE [Concomitant]
     Route: 049
  6. ALUMINUM HYDROXIDE AND MAGNESIUM TRISILICATE [Concomitant]
     Dosage: UNKNOWN
     Route: 049

REACTIONS (1)
  - HEPATIC FAILURE [None]
